FAERS Safety Report 24189620 (Version 1)
Quarter: 2024Q3

REPORT INFORMATION
  Report Type: Report from Study
  Country: KR (occurrence: KR)
  Receive Date: 20240808
  Receipt Date: 20240808
  Transmission Date: 20241016
  Serious: Yes (Death)
  Sender: PFIZER
  Company Number: KR-PFIZER INC-202400231095

PATIENT

DRUGS (4)
  1. GEMCITABINE HYDROCHLORIDE [Suspect]
     Active Substance: GEMCITABINE HYDROCHLORIDE
     Indication: Bile duct adenocarcinoma
     Dosage: 1000 MG/M2, ON DAYS 1 AND 8 OF EACH CYCLE (21-DAY CYCLE)
     Route: 042
  2. CISPLATIN [Suspect]
     Active Substance: CISPLATIN
     Indication: Bile duct adenocarcinoma
     Dosage: 25 MG/M2, ON DAYS 1 AND 8 OF EACH CYCLE (21-DAY CYCLE)
     Route: 042
  3. DURVALUMAB [Suspect]
     Active Substance: DURVALUMAB
     Indication: Bile duct adenocarcinoma
     Dosage: 1500 MG, ON DAY 1 OF EACH CYCLE (21-DAY CYCLE)
     Route: 042
  4. DURVALUMAB [Suspect]
     Active Substance: DURVALUMAB
     Dosage: 1500 MG, ONCE EVERY 4 WEEKS
     Route: 042

REACTIONS (1)
  - Hepatic failure [Fatal]
